FAERS Safety Report 21396910 (Version 3)
Quarter: 2023Q1

REPORT INFORMATION
  Report Type: Spontaneous
  Country: BR (occurrence: BR)
  Receive Date: 20220930
  Receipt Date: 20230313
  Transmission Date: 20230418
  Serious: Yes (Other)
  Sender: FDA-Public Use
  Company Number: BR-GLAXOSMITHKLINE-BR2022AMR137681

PATIENT

DRUGS (12)
  1. BENLYSTA [Suspect]
     Active Substance: BELIMUMAB
     Indication: Systemic lupus erythematosus
     Dosage: 120 MG, Z, 6 FLASKS OF 120MG EVERY 30 DAYS
     Route: 042
     Dates: start: 20220211, end: 20230124
  2. BENLYSTA [Suspect]
     Active Substance: BELIMUMAB
     Indication: Face injury
  3. BENLYSTA [Suspect]
     Active Substance: BELIMUMAB
     Indication: Product used for unknown indication
     Dosage: 200 MG/ML
  4. DIPYRONE [Suspect]
     Active Substance: DIPYRONE
     Indication: Headache
     Dosage: UNK
  5. DIPYRONE [Suspect]
     Active Substance: DIPYRONE
     Indication: Pain
  6. NALTREXONE [Suspect]
     Active Substance: NALTREXONE
     Indication: Headache
     Dosage: UNK
  7. NALTREXONE [Suspect]
     Active Substance: NALTREXONE
     Indication: Pain
  8. AMITRIPTYLINE [Concomitant]
     Active Substance: AMITRIPTYLINE
     Indication: Headache
     Dosage: 25 MG, QD, DAILY USE
  9. TOPIRAMATE [Concomitant]
     Active Substance: TOPIRAMATE
     Indication: Headache
     Dosage: 25 MG, QD, DAILY USE
  10. HYDROXYCHLOROQUINE [Concomitant]
     Active Substance: HYDROXYCHLOROQUINE
     Indication: Systemic lupus erythematosus
     Dosage: UNK
  11. DAPSONE [Concomitant]
     Active Substance: DAPSONE
     Indication: Wound
     Dosage: 100 MG, ALTERNATIVE DAYS WHILE USED BENLYSTA
  12. DAPSONE [Concomitant]
     Active Substance: DAPSONE
     Indication: Systemic lupus erythematosus
     Dosage: 150 MG,EVERY DAY WHILE BENLYSTA WAS SUSPENDED

REACTIONS (14)
  - Malaise [Unknown]
  - Dizziness [Unknown]
  - Systemic lupus erythematosus [Not Recovered/Not Resolved]
  - Condition aggravated [Not Recovered/Not Resolved]
  - Somnolence [Unknown]
  - Vertigo [Unknown]
  - Feeling abnormal [Unknown]
  - Influenza [Not Recovered/Not Resolved]
  - Fatigue [Not Recovered/Not Resolved]
  - Vitiligo [Unknown]
  - Drug ineffective [Unknown]
  - Drug effect less than expected [Unknown]
  - Product use in unapproved indication [Unknown]
  - Product complaint [Unknown]

NARRATIVE: CASE EVENT DATE: 20220901
